FAERS Safety Report 10156730 (Version 1)
Quarter: 2014Q2

REPORT INFORMATION
  Report Type: Spontaneous
  Country: FR (occurrence: None)
  Receive Date: 20140505
  Receipt Date: 20140505
  Transmission Date: 20141212
  Serious: Yes (Hospitalization, Other)
  Sender: FDA-Public Use
  Company Number: 2014111989

PATIENT
  Age: 65 Year
  Sex: Male

DRUGS (1)
  1. FRAGMINE [Suspect]
     Dates: start: 201401, end: 201402

REACTIONS (4)
  - Injection site haematoma [None]
  - Injection site pain [None]
  - Systemic inflammatory response syndrome [None]
  - Pyrexia [None]
